FAERS Safety Report 7209248-4 (Version None)
Quarter: 2011Q1

REPORT INFORMATION
  Report Type: 
  Country: None (occurrence: None)
  Receive Date: 20110104
  Receipt Date: 20101229
  Transmission Date: 20110831
  Serious: Yes (Death, Hospitalization)
  Sender: FDA-Public Use
  Company Number: A0902026A

PATIENT
  Age: 32 Year
  Sex: Male

DRUGS (2)
  1. KALETRA [Concomitant]
  2. EPIVIR [Suspect]
     Indication: HIV INFECTION
     Route: 048
     Dates: end: 20100801

REACTIONS (1)
  - NEOPLASM MALIGNANT [None]
